FAERS Safety Report 9821723 (Version 1)
Quarter: 2014Q1

REPORT INFORMATION
  Report Type: Spontaneous
  Country: US (occurrence: US)
  Receive Date: 20140116
  Receipt Date: 20140116
  Transmission Date: 20141002
  Serious: No
  Sender: FDA-Public Use
  Company Number: US-PFIZER INC-2014013327

PATIENT
  Age: 56 Year
  Sex: Female
  Weight: 90.7 kg

DRUGS (6)
  1. EFFEXOR XR [Suspect]
     Indication: DEPRESSION
     Dosage: 75 MG, 2X/DAY
  2. EFFEXOR XR [Suspect]
     Dosage: UNK, EVERY OTHER DAY
     Dates: start: 201401, end: 201401
  3. EFFEXOR XR [Suspect]
     Dosage: UNK, EVERY TWO DAYS
     Dates: start: 201401
  4. VERAPAMIL HYDROCHLORIDE [Concomitant]
     Indication: BLOOD PRESSURE ABNORMAL
     Dosage: 240 MG, DAILY
  5. CARVEDILOL [Concomitant]
     Indication: BLOOD PRESSURE ABNORMAL
     Dosage: 25 MG, 2X/DAY
  6. PRILOSEC [Concomitant]
     Indication: GASTRIC DISORDER
     Dosage: 20.6 MG, DAILY

REACTIONS (1)
  - Feeling abnormal [Not Recovered/Not Resolved]
